FAERS Safety Report 7743377-1 (Version None)
Quarter: 2011Q3

REPORT INFORMATION
  Report Type: 
  Country: None (occurrence: None)
  Receive Date: 20110912
  Receipt Date: 20110907
  Transmission Date: 20111222
  Serious: Yes (Death, Other)
  Sender: FDA-Public Use
  Company Number: PHHY2009IT57913

PATIENT
  Sex: Female

DRUGS (5)
  1. ZOMETA [Suspect]
     Indication: METASTASES TO BONE
     Dosage: 4 MG, QMO
     Route: 042
     Dates: start: 20020801, end: 20030701
  2. DOCETAXEL [Concomitant]
     Dosage: UNK UKN, UNK
  3. DOXORUBICIN HCL [Concomitant]
     Dosage: UNK UKN, UNK
  4. EPIRUBICIN [Concomitant]
     Dosage: UNK UKN, UNK
  5. VINORELBINE [Concomitant]
     Dosage: UNK UKN, UNK

REACTIONS (2)
  - DEATH [None]
  - OSTEONECROSIS OF JAW [None]
